FAERS Safety Report 4714564-1 (Version None)
Quarter: 2005Q3

REPORT INFORMATION
  Report Type: 
  Country: None (occurrence: None)
  Receive Date: 20050714
  Receipt Date: 20050704
  Transmission Date: 20060218
  Serious: Yes (Other)
  Sender: FDA-Public Use
  Company Number: US-MERCK-0507USA00539

PATIENT
  Age: 75 Year
  Sex: Female

DRUGS (2)
  1. INDOCIN [Suspect]
     Indication: PAIN
     Route: 048
     Dates: start: 19860101
  2. VIOXX [Suspect]
     Indication: PAIN
     Route: 048
     Dates: start: 20030101

REACTIONS (4)
  - GASTROINTESTINAL OEDEMA [None]
  - INTESTINAL HAEMORRHAGE [None]
  - SMALL INTESTINAL OBSTRUCTION [None]
  - SMALL INTESTINAL STENOSIS [None]
